FAERS Safety Report 9343977 (Version 1)
Quarter: 2013Q2

REPORT INFORMATION
  Report Type: Spontaneous
  Country: GB (occurrence: None)
  Receive Date: 20130610
  Receipt Date: 20130610
  Transmission Date: 20140414
  Serious: Yes (Hospitalization, Other)
  Sender: FDA-Public Use
  Company Number: 2013P1006720

PATIENT
  Age: 2 Year
  Sex: Female
  Weight: 12 kg

DRUGS (1)
  1. VALPROATE SODIUM [Suspect]
     Indication: ACCIDENTAL OVERDOSE

REACTIONS (3)
  - Accidental overdose [None]
  - Haemofiltration [None]
  - Depressed level of consciousness [None]
